FAERS Safety Report 4690697-3 (Version None)
Quarter: 2005Q2

REPORT INFORMATION
  Report Type: 
  Country: None (occurrence: None)
  Receive Date: 20050613
  Receipt Date: 20050601
  Transmission Date: 20051028
  Serious: Yes (Other)
  Sender: FDA-Public Use
  Company Number: 214949

PATIENT
  Age: 64 Year
  Sex: Female
  Weight: 45.4 kg

DRUGS (8)
  1. RITUXAN [Suspect]
     Indication: NON-HODGKIN'S LYMPHOMA
     Dosage: 500 MG, INTRAVENOUS
     Route: 042
     Dates: start: 20011012
  2. ONCOVIN [Suspect]
     Indication: NON-HODGKIN'S LYMPHOMA
     Dosage: 1.9 MG, DAY 1, INTRAVENOUS
     Route: 042
     Dates: start: 20011015
  3. ADRIACIN (DOXORUBICIN HYDROCHLORIDE, DOXORUBICIN) [Suspect]
     Indication: NON-HODGKIN'S LYMPHOMA
     Dosage: 69 MG, DAY 1, INTRAVENOUS
     Route: 042
     Dates: start: 20011015
  4. CYCLOPHOSPHAMIDE [Suspect]
     Indication: NON-HODGKIN'S LYMPHOMA
     Dosage: 1040 MG, DAY 1, INTRAVENOUS
     Route: 042
     Dates: start: 20011015
  5. PREDNISOLONE [Suspect]
     Indication: NON-HODGKIN'S LYMPHOMA
     Dosage: 100 MG, DAY 1-5, INTRAVENOUS
     Route: 042
     Dates: start: 20011015
  6. CALONAL (ACETAMINOPHEN) [Concomitant]
  7. DEXCHLORPHENIRAMINE MALEATE [Concomitant]
  8. ACETAMINOPHEN [Concomitant]

REACTIONS (1)
  - WHITE BLOOD CELL COUNT DECREASED [None]
